FAERS Safety Report 17100432 (Version 1)
Quarter: 2019Q4

REPORT INFORMATION
  Report Type: Spontaneous
  Country: FR (occurrence: FR)
  Receive Date: 20191202
  Receipt Date: 20191202
  Transmission Date: 20200122
  Serious: Yes (Other)
  Sender: FDA-Public Use
  Company Number: FR-MYLANLABS-2019M1115737

PATIENT
  Age: 34 Year
  Sex: Male

DRUGS (4)
  1. OLANZAPINE. [Suspect]
     Active Substance: OLANZAPINE
     Dosage: 5 MILLIGRAM, UNKNOWN
     Route: 048
  2. OLANZAPINE. [Suspect]
     Active Substance: OLANZAPINE
     Indication: AFFECTIVE DISORDER
     Dosage: 10 MILLIGRAM, UNKNOWN
     Route: 048
  3. ZYPREXA [Suspect]
     Active Substance: OLANZAPINE
     Indication: AFFECTIVE DISORDER
     Dosage: 10 MILLIGRAM, UNKNOWN
     Route: 048
  4. ZYPREXA [Suspect]
     Active Substance: OLANZAPINE
     Dosage: 5 MILLIGRAM, UNKNOWN
     Route: 048

REACTIONS (9)
  - Deformity [Unknown]
  - Drug withdrawal syndrome [Unknown]
  - Tremor [Unknown]
  - Dizziness [Unknown]
  - Cerebral disorder [Unknown]
  - Feeling abnormal [Unknown]
  - Pruritus [Unknown]
  - Weight increased [Recovered/Resolved]
  - Blood pressure abnormal [Unknown]
